FAERS Safety Report 4396762-2 (Version None)
Quarter: 2004Q3

REPORT INFORMATION
  Report Type: 
  Country: None (occurrence: None)
  Receive Date: 20040714
  Receipt Date: 20040706
  Transmission Date: 20050211
  Serious: Yes (Hospitalization)
  Sender: FDA-Public Use
  Company Number: 200416722GDDC

PATIENT
  Age: 56 Year
  Sex: Female

DRUGS (6)
  1. LASIX [Suspect]
     Dosage: DOSE: UNK
     Dates: start: 20020426, end: 20020601
  2. ANTIBIOTICS [Concomitant]
     Dosage: DOSE: UNK
  3. UNKNOWN DRUG [Concomitant]
     Dosage: DOSE: UNK
  4. ANTIPSYCHOTICS [Concomitant]
     Dosage: DOSE: UNK
  5. DIURETICS [Concomitant]
     Dosage: DOSE: UNK
  6. CARDIOVASCULAR SYSTEM DRUGS [Concomitant]
     Dosage: DOSE: UNK

REACTIONS (3)
  - APOPTOSIS [None]
  - DRUG INTERACTION [None]
  - TOXIC EPIDERMAL NECROLYSIS [None]
